FAERS Safety Report 11806318 (Version 2)
Quarter: 2016Q1

REPORT INFORMATION
  Report Type: Spontaneous
  Country: US (occurrence: US)
  Receive Date: 20151207
  Receipt Date: 20160128
  Transmission Date: 20160525
  Serious: Yes (Death, Hospitalization, Other)
  Sender: FDA-Public Use
  Company Number: US-009507513-1512USA002673

PATIENT
  Sex: Male
  Weight: 68.48 kg

DRUGS (1)
  1. KEYTRUDA [Suspect]
     Active Substance: PEMBROLIZUMAB
     Dosage: 140 MG, QD
     Route: 042
     Dates: start: 20150703, end: 201507

REACTIONS (12)
  - Metastases to liver [Fatal]
  - Staphylococcal sepsis [Fatal]
  - Multiple organ dysfunction syndrome [Fatal]
  - Respiratory failure [Fatal]
  - Small intestinal obstruction [Fatal]
  - Hypotension [Fatal]
  - Dysphagia [Fatal]
  - Metastases to bone [Fatal]
  - Anaemia [Fatal]
  - Atrial fibrillation [Fatal]
  - Acute kidney injury [Fatal]
  - Toxic encephalopathy [Fatal]

NARRATIVE: CASE EVENT DATE: 2015
